FAERS Safety Report 11068761 (Version 2)
Quarter: 2015Q3

REPORT INFORMATION
  Report Type: Spontaneous
  Country: IT (occurrence: IT)
  Receive Date: 20150427
  Receipt Date: 20150930
  Transmission Date: 20151125
  Serious: Yes (Hospitalization)
  Sender: FDA-Public Use
  Company Number: IT-PFIZER INC-2015130617

PATIENT
  Age: 88 Year
  Sex: Female

DRUGS (7)
  1. BISOPROLOL FUMARATE. [Concomitant]
     Active Substance: BISOPROLOL FUMARATE
     Dosage: UNK
  2. LUVION [Suspect]
     Active Substance: CANRENONE
     Dosage: 1 DF, DAILY
     Route: 048
     Dates: start: 20150311, end: 20150411
  3. LANOXIN [Concomitant]
     Active Substance: DIGOXIN
     Dosage: UNK
  4. TRIATEC [Suspect]
     Active Substance: RAMIPRIL
     Indication: HYPERTENSION
     Dosage: 2 DF, DAILY
     Route: 048
     Dates: start: 20140101, end: 20150411
  5. EUTIROX [Concomitant]
     Active Substance: LEVOTHYROXINE SODIUM
     Dosage: UNK
  6. ELIQUIS [Concomitant]
     Active Substance: APIXABAN
     Dosage: UNK
  7. LASIX [Suspect]
     Active Substance: FUROSEMIDE
     Indication: CARDIAC FAILURE
     Dosage: 325 MG, DAILY
     Route: 048
     Dates: start: 20150324, end: 20150411

REACTIONS (3)
  - Dehydration [Recovering/Resolving]
  - Hyperkalaemia [Recovering/Resolving]
  - Acute prerenal failure [Recovering/Resolving]

NARRATIVE: CASE EVENT DATE: 20150411
